FAERS Safety Report 4762295-4 (Version None)
Quarter: 2005Q3

REPORT INFORMATION
  Report Type: 
  Country: None (occurrence: None)
  Receive Date: 20050901
  Receipt Date: 20050608
  Transmission Date: 20060218
  Serious: No
  Sender: FDA-Public Use
  Company Number: US137659

PATIENT
  Age: 22 Year
  Sex: Female

DRUGS (1)
  1. KEPIVANCE [Suspect]
     Indication: MUCOSAL INFLAMMATION
     Dosage: 60 MCG/KG, 1 IN 1 DAYS
     Dates: start: 20050422, end: 20050423

REACTIONS (2)
  - EYE SWELLING [None]
  - SWELLING FACE [None]
